FAERS Safety Report 13346293 (Version 3)
Quarter: 2017Q1

REPORT INFORMATION
  Report Type: Report from Study
  Country: CA (occurrence: CA)
  Receive Date: 20170317
  Receipt Date: 20170331
  Transmission Date: 20170428
  Serious: Yes (Hospitalization)
  Sender: FDA-Public Use
  Company Number: CA-BIOGEN-2017BI00345741

PATIENT
  Age: 40 Year
  Sex: Female

DRUGS (2)
  1. TYSABRI [Suspect]
     Active Substance: NATALIZUMAB
     Dosage: INFUSED OVER 1 HOUR
     Route: 042
     Dates: start: 201601, end: 20170118
  2. TYSABRI [Suspect]
     Active Substance: NATALIZUMAB
     Indication: MULTIPLE SCLEROSIS
     Dosage: INFUSED OVER 1 HOUR
     Route: 042
     Dates: start: 20081015, end: 201610

REACTIONS (12)
  - Meningitis [Unknown]
  - Migraine [Unknown]
  - Progressive multifocal leukoencephalopathy [Unknown]
  - Anxiety [Unknown]
  - Gastritis [Unknown]
  - Prescribed underdose [Recovered/Resolved]
  - Herpes pharyngitis [Unknown]
  - Flank pain [Unknown]
  - Laryngitis [Unknown]
  - Pleural effusion [Unknown]
  - Oral herpes [Unknown]
  - Influenza [Unknown]

NARRATIVE: CASE EVENT DATE: 201701
